FAERS Safety Report 8576936 (Version 2)
Quarter: 2014Q1

REPORT INFORMATION
  Report Type: Spontaneous
  Country: US (occurrence: None)
  Receive Date: 20120323
  Receipt Date: 20130305
  Transmission Date: 20141002
  Serious: Yes (Other)
  Sender: FDA-Public Use
  Company Number: 163-21880-11041143

PATIENT
  Age: 88 Year
  Sex: Male
  Weight: 83.01 kg

DRUGS (20)
  1. REVLIMID [Suspect]
     Indication: PLASMA CELL MYELOMA
     Dosage: 25 MG, QD, FOR 21 DAYS, PO
     Route: 048
     Dates: start: 20110128
  2. AMLODIPINE [Concomitant]
  3. CLONIDINE TRANSDERMAL SYSTEM [Concomitant]
  4. FOLIC ACID (FOLIC ACID)(UNKNOWN) [Concomitant]
  5. GARLIC (GARLIC)(UNKNOWN) [Concomitant]
  6. ISOSORB (ISOSORBIDE)(UNKNOWN) [Concomitant]
  7. LEVOTHYROX (LEVOTHYROXINE SODIUM)(UNKNOWN) [Concomitant]
  8. LIPITOR [Concomitant]
  9. LOSARTAN POTASSIUM [Concomitant]
  10. MELATONIN (MELATONIN)(UNKNOWN) [Concomitant]
  11. PLAVIX [Concomitant]
  12. POTASSIUM (POTASSIUM)(UNKNOWN) [Concomitant]
  13. PRILOSEC (OMEPRAZOLE)(UNKNOWN) [Concomitant]
  14. PROPRANOL (PROPRANOLOL HYDROCHLORIDE)(UNKNOWN) [Concomitant]
  15. VITAMIN B12 (CYANOCOBALAMIN)(UNKNOWN) [Concomitant]
  16. VITAMIN D (ERGOCALCIFEROL)(UNKNOWN) [Concomitant]
  17. XANAX [Concomitant]
  18. WELLBUTRIN (BUPROPION HYDROCHLORIDE)(UNKNOWN) [Concomitant]
  19. LASIX [Concomitant]
  20. CO-Q10 (UBIDECARENONE) [Concomitant]

REACTIONS (4)
  - Red blood cell count decreased [None]
  - White blood cell count decreased [None]
  - Plasmacytoma [None]
  - Neutrophil count decreased [None]
